FAERS Safety Report 23371510 (Version 1)
Quarter: 2024Q1

REPORT INFORMATION
  Report Type: Spontaneous
  Country: FR (occurrence: FR)
  Receive Date: 20240105
  Receipt Date: 20240105
  Transmission Date: 20240410
  Serious: Yes (Other)
  Sender: FDA-Public Use
  Company Number: FR-ALCON LABORATORIES-ALC2023FR005817

PATIENT

DRUGS (1)
  1. ATROPINE [Suspect]
     Active Substance: ATROPINE\ATROPINE SULFATE
     Indication: Fundoscopy
     Dosage: 2 DROPS, QD
     Dates: start: 20231129, end: 20231204

REACTIONS (4)
  - Mydriasis [Recovering/Resolving]
  - Nausea [Recovering/Resolving]
  - Constipation [Recovered/Resolved]
  - Headache [Recovered/Resolved]

NARRATIVE: CASE EVENT DATE: 20231204
